FAERS Safety Report 9163304 (Version 3)
Quarter: 2014Q1

REPORT INFORMATION
  Report Type: Spontaneous
  Country: US (occurrence: None)
  Receive Date: 20130222
  Receipt Date: 20140212
  Transmission Date: 20141002
  Serious: Yes (Other)
  Sender: FDA-Public Use
  Company Number: AUR-APL-2013-01496

PATIENT
  Age: 76 Year
  Sex: Male

DRUGS (3)
  1. CLOPIDOGREL [Suspect]
     Indication: PRODUCT USED FOR UNKNOWN INDICATION
  2. SIMVASTATIN (SIMVASTATIN) [Concomitant]
  3. TAMSULOSIN (TAMSULOSIN) [Concomitant]

REACTIONS (6)
  - Extremity necrosis [None]
  - Gangrene [None]
  - Activated partial thromboplastin time prolonged [None]
  - Fibrin D dimer increased [None]
  - Thrombophlebitis superficial [None]
  - Epidermal necrosis [None]
